FAERS Safety Report 23472724 (Version 1)
Quarter: 2024Q1

REPORT INFORMATION
  Report Type: Report from Study
  Country: SA (occurrence: SA)
  Receive Date: 20240202
  Receipt Date: 20240202
  Transmission Date: 20240410
  Serious: Yes (Other)
  Sender: FDA-Public Use
  Company Number: SA-VKT-000440

PATIENT
  Age: 3 Year
  Sex: Male

DRUGS (2)
  1. LEVETIRACETAM [Suspect]
     Active Substance: LEVETIRACETAM
     Indication: Clonic convulsion
     Route: 065
  2. VALPROIC ACID [Suspect]
     Active Substance: VALPROIC ACID
     Indication: Clonic convulsion
     Route: 065

REACTIONS (3)
  - Frontal lobe epilepsy [Unknown]
  - Temporal lobe epilepsy [Unknown]
  - Therapy non-responder [Unknown]
